FAERS Safety Report 19022024 (Version 1)
Quarter: 2021Q1

REPORT INFORMATION
  Report Type: Spontaneous
  Country: US (occurrence: US)
  Receive Date: 20210318
  Receipt Date: 20210318
  Transmission Date: 20210420
  Serious: No
  Sender: FDA-Public Use
  Company Number: US-SA-2021SA088286

PATIENT
  Age: 27 Year
  Sex: Female

DRUGS (1)
  1. DUPIXENT [Suspect]
     Active Substance: DUPILUMAB
     Indication: DERMATITIS ATOPIC
     Dates: start: 20190103

REACTIONS (8)
  - Eye discharge [Unknown]
  - Conjunctivitis [Unknown]
  - Skin exfoliation [Unknown]
  - Erythema of eyelid [Unknown]
  - Condition aggravated [Unknown]
  - Swelling of eyelid [Unknown]
  - Eye irritation [Unknown]
  - Eye pruritus [Unknown]
